FAERS Safety Report 8499469-5 (Version None)
Quarter: 2012Q3

REPORT INFORMATION
  Report Type: 
  Country: None (occurrence: None)
  Receive Date: 20120710
  Receipt Date: 20120629
  Transmission Date: 20120928
  Serious: No
  Sender: FDA-Public Use
  Company Number: US-JNJFOC-20120100043

PATIENT
  Sex: Female
  Weight: 74.84 kg

DRUGS (8)
  1. FENTANYL-100 [Suspect]
     Indication: HEADACHE
     Route: 062
  2. PERCOCET [Concomitant]
     Indication: HEADACHE
     Route: 048
  3. PERCOCET [Concomitant]
     Indication: MIGRAINE
     Route: 048
  4. DURAGESIC-100 [Suspect]
     Indication: MIGRAINE
     Route: 062
  5. FENTANYL CITRATE [Suspect]
     Indication: PRODUCT USED FOR UNKNOWN INDICATION
     Route: 062
     Dates: start: 20080101
  6. FENTANYL-100 [Suspect]
     Indication: MIGRAINE
     Route: 062
  7. DURAGESIC-100 [Suspect]
     Indication: HEADACHE
     Route: 062
  8. DURAGESIC-100 [Suspect]
     Indication: PAIN MANAGEMENT
     Route: 062

REACTIONS (7)
  - WRONG TECHNIQUE IN DRUG USAGE PROCESS [None]
  - PRODUCT QUALITY ISSUE [None]
  - RASH [None]
  - DRUG ADMINISTERED AT INAPPROPRIATE SITE [None]
  - DRUG INEFFECTIVE [None]
  - APPLICATION SITE EROSION [None]
  - PRURITUS [None]
